FAERS Safety Report 11287650 (Version 1)
Quarter: 2015Q3

REPORT INFORMATION
  Report Type: Spontaneous
  Country: US (occurrence: None)
  Receive Date: 20150720
  Receipt Date: 20150720
  Transmission Date: 20151125
  Serious: Yes (Life-Threatening, Hospitalization)
  Sender: FDA-Public Use
  Company Number: None

PATIENT
  Age: 65 Year
  Sex: Female

DRUGS (8)
  1. PREDNISONE. [Concomitant]
     Active Substance: PREDNISONE
  2. NASONEX [Concomitant]
     Active Substance: MOMETASONE FUROATE
  3. ACYCLOVIR. [Concomitant]
     Active Substance: ACYCLOVIR
  4. ACETAMINOPHEN. [Concomitant]
     Active Substance: ACETAMINOPHEN
  5. ABRAXANE [Suspect]
     Active Substance: PACLITAXEL
     Indication: HODGKIN^S DISEASE
     Dosage: 150 MG/M2 IV DAYS 1,8,15
     Route: 042
     Dates: start: 20150415, end: 20150527
  6. GABAPENTIN. [Concomitant]
     Active Substance: GABAPENTIN
  7. ESOMEPRAZOLE [Concomitant]
     Active Substance: ESOMEPRAZOLE
  8. OXYCODONE [Concomitant]
     Active Substance: OXYCODONE

REACTIONS (6)
  - Disease progression [None]
  - Central nervous system lesion [None]
  - Progressive multifocal leukoencephalopathy [None]
  - Nuclear magnetic resonance imaging brain abnormal [None]
  - Hodgkin^s disease [None]
  - Asthenia [None]

NARRATIVE: CASE EVENT DATE: 20150707
